FAERS Safety Report 15495188 (Version 1)
Quarter: 2018Q4

REPORT INFORMATION
  Report Type: Spontaneous
  Country: US (occurrence: US)
  Receive Date: 20181012
  Receipt Date: 20181012
  Transmission Date: 20190205
  Serious: Yes (Other)
  Sender: FDA-Public Use
  Company Number: US-UCBSA-2018044856

PATIENT
  Sex: Female
  Weight: 56 kg

DRUGS (2)
  1. KEPPRA [Suspect]
     Active Substance: LEVETIRACETAM
     Indication: PRODUCT USED FOR UNKNOWN INDICATION
     Dosage: 1000 MG TWICE A DAY (NOT SURE ABOUT DOSE)
     Dates: start: 2007
  2. PRENATAL VITAMINS [Concomitant]
     Active Substance: VITAMINS
     Indication: PRODUCT USED FOR UNKNOWN INDICATION

REACTIONS (7)
  - Drug ineffective [Unknown]
  - Malaise [Unknown]
  - Exposure during pregnancy [Unknown]
  - Breast feeding [Unknown]
  - Vomiting [Unknown]
  - Seizure [Unknown]
  - Depression [Unknown]

NARRATIVE: CASE EVENT DATE: 2007
